APPROVED DRUG PRODUCT: FAMOTIDINE
Active Ingredient: FAMOTIDINE
Strength: 40MG
Dosage Form/Route: TABLET;ORAL
Application: A215767 | Product #002 | TE Code: AB
Applicant: ANNORA PHARMA PRIVATE LTD
Approved: Nov 4, 2021 | RLD: No | RS: No | Type: RX